FAERS Safety Report 4893496-2 (Version None)
Quarter: 2006Q1

REPORT INFORMATION
  Report Type: 
  Country: None (occurrence: None)
  Receive Date: 20060127
  Receipt Date: 20051202
  Transmission Date: 20060701
  Serious: Yes (Other)
  Sender: FDA-Public Use
  Company Number: US-BRISTOL-MYERS SQUIBB COMPANY-13202825

PATIENT

DRUGS (2)
  1. KENALOG [Suspect]
     Indication: CARPAL TUNNEL SYNDROME
  2. MARCAINE [Suspect]
     Indication: CARPAL TUNNEL SYNDROME
     Route: 030

REACTIONS (1)
  - ANAPHYLACTIC REACTION [None]
